FAERS Safety Report 24009418 (Version 1)
Quarter: 2024Q2

REPORT INFORMATION
  Report Type: Spontaneous
  Country: US (occurrence: US)
  Receive Date: 20240625
  Receipt Date: 20240625
  Transmission Date: 20240716
  Serious: Yes (Other)
  Sender: FDA-Public Use
  Company Number: US-SUN PHARMACEUTICAL INDUSTRIES LTD-2024R1-452228

PATIENT
  Age: 24 Year
  Sex: Male

DRUGS (5)
  1. CALCITRIOL [Suspect]
     Active Substance: CALCITRIOL
     Indication: Hypocalcaemia
     Dosage: 1.5 MCG, DAILY
     Route: 065
  2. CALCITRIOL [Suspect]
     Active Substance: CALCITRIOL
     Dosage: 0.5 MCG, DAILY
     Route: 065
  3. CALCIUM CITRATE [Suspect]
     Active Substance: CALCIUM CITRATE
     Indication: Hypocalcaemia
     Dosage: 500 MILLIGRAM, BID
     Route: 065
  4. CALCIUM CITRATE [Suspect]
     Active Substance: CALCIUM CITRATE
     Dosage: 250 MILLIGRAM, BID
     Route: 065
  5. CALCIUM CITRATE [Suspect]
     Active Substance: CALCIUM CITRATE
     Dosage: 250 MILLIGRAM, DAILY
     Route: 065

REACTIONS (2)
  - Hypercalcaemia [Recovering/Resolving]
  - Acute kidney injury [Recovering/Resolving]
